FAERS Safety Report 10798607 (Version 3)
Quarter: 2015Q3

REPORT INFORMATION
  Report Type: Spontaneous
  Country: CA (occurrence: CA)
  Receive Date: 20150216
  Receipt Date: 20150902
  Transmission Date: 20151125
  Serious: Yes (Other)
  Sender: FDA-Public Use
  Company Number: CA-GLAXOSMITHKLINE-CA2015GSK017616

PATIENT
  Sex: Female

DRUGS (1)
  1. TAFINLAR [Suspect]
     Active Substance: DABRAFENIB MESYLATE
     Indication: METASTATIC MALIGNANT MELANOMA
     Dosage: 150 MG, QD
     Dates: start: 20150115

REACTIONS (5)
  - Adverse drug reaction [Unknown]
  - Haemorrhage subcutaneous [Recovering/Resolving]
  - Skin discolouration [Not Recovered/Not Resolved]
  - Rash generalised [Recovering/Resolving]
  - Poor peripheral circulation [Not Recovered/Not Resolved]
